FAERS Safety Report 20187083 (Version 3)
Quarter: 2021Q4

REPORT INFORMATION
  Report Type: Spontaneous
  Country: US (occurrence: None)
  Receive Date: 20211215
  Receipt Date: 20211223
  Transmission Date: 20220303
  Serious: Yes (Other)
  Sender: FDA-Public Use
  Company Number: US-ROCHE-2976865

PATIENT
  Age: 74 Year
  Sex: Female
  Weight: 59.020 kg

DRUGS (1)
  1. RITUXAN [Suspect]
     Active Substance: RITUXIMAB
     Indication: Rheumatoid arthritis
     Route: 042
     Dates: start: 201509, end: 201510

REACTIONS (4)
  - Intestinal perforation [Recovered/Resolved]
  - Autoimmune hepatitis [Unknown]
  - Osteoporosis [Unknown]
  - Food poisoning [Unknown]

NARRATIVE: CASE EVENT DATE: 20160301
